FAERS Safety Report 7455597-4 (Version None)
Quarter: 2011Q2

REPORT INFORMATION
  Report Type: 
  Country: None (occurrence: None)
  Receive Date: 20110503
  Receipt Date: 20110425
  Transmission Date: 20111010
  Serious: Yes (Death, Hospitalization)
  Sender: FDA-Public Use
  Company Number: US-GILEAD-2011-0038308

PATIENT
  Sex: Male

DRUGS (13)
  1. LETAIRIS [Suspect]
     Indication: PULMONARY HYPERTENSION
     Route: 048
     Dates: start: 20110228
  2. ADCIRCA [Concomitant]
  3. MULTI-VITAMINS [Concomitant]
  4. ASPIRIN [Concomitant]
  5. METOPROLOL SUCCINATE [Concomitant]
  6. PIOGLITAZONE [Concomitant]
  7. SITAGLIPTIN [Concomitant]
  8. CLOPIDOGREL [Concomitant]
  9. SIMVASTATIN [Concomitant]
  10. BUMEX [Concomitant]
  11. GLYBURIDE [Concomitant]
  12. DUTASTERIDE [Concomitant]
  13. ASCORBIC ACID [Concomitant]

REACTIONS (4)
  - RESPIRATORY FAILURE [None]
  - EPISTAXIS [None]
  - FALL [None]
  - HIP FRACTURE [None]
